FAERS Safety Report 7192008-0 (Version None)
Quarter: 2010Q4

REPORT INFORMATION
  Report Type: 
  Country: None (occurrence: None)
  Receive Date: 20101223
  Receipt Date: 20101220
  Transmission Date: 20110411
  Serious: Yes (Life-Threatening)
  Sender: FDA-Public Use
  Company Number: PHHO2010GB19372

PATIENT
  Age: 60 Year
  Sex: Female

DRUGS (11)
  1. DICLOFENAC [Suspect]
     Dosage: 150 MG, DAY
     Route: 048
     Dates: start: 20100915, end: 20101022
  2. DEXAMETHASONE [Concomitant]
  3. OMEPRAZOLE [Concomitant]
  4. PARACETAMOL [Concomitant]
  5. OXYCONTIN [Concomitant]
  6. MIRTAZAPINE [Concomitant]
  7. LORAZEPAM [Concomitant]
  8. CO-DANTHRAMER [Concomitant]
  9. OXYCODONE HCL [Concomitant]
  10. NOZINAN [Concomitant]
  11. DIAMORPHINE [Concomitant]

REACTIONS (4)
  - GENERAL PHYSICAL HEALTH DETERIORATION [None]
  - HAEMATEMESIS [None]
  - PYREXIA [None]
  - UPPER GASTROINTESTINAL HAEMORRHAGE [None]
